FAERS Safety Report 6994164-3 (Version None)
Quarter: 2010Q3

REPORT INFORMATION
  Report Type: 
  Country: None (occurrence: None)
  Receive Date: 20100917
  Receipt Date: 20100910
  Transmission Date: 20110219
  Serious: Yes (Hospitalization, Other)
  Sender: FDA-Public Use
  Company Number: US-WYE-H17144110

PATIENT
  Age: 34 Year
  Sex: Male

DRUGS (6)
  1. TEMSIROLIMUS [Suspect]
     Indication: ADRENOCORTICAL CARCINOMA
     Route: 042
  2. DOXORUBICIN HYDROCHLORIDE [Suspect]
     Indication: ADRENOCORTICAL CARCINOMA
     Dosage: 74MG (N25 MG/M^2) EVERY 4 WEEKS
     Route: 042
  3. LOPRESSOR [Concomitant]
     Indication: HYPERTENSION
  4. PREDNISONE [Concomitant]
  5. COUMADIN [Concomitant]
  6. AMLODIPINE [Concomitant]
     Indication: HYPERTENSION

REACTIONS (10)
  - ALANINE AMINOTRANSFERASE INCREASED [None]
  - ASPARTATE AMINOTRANSFERASE INCREASED [None]
  - BLOOD CREATININE INCREASED [None]
  - BLOOD PHOSPHORUS DECREASED [None]
  - BLOOD TRIGLYCERIDES INCREASED [None]
  - DYSPNOEA [None]
  - FATIGUE [None]
  - HYPERGLYCAEMIA [None]
  - HYPERTENSION [None]
  - INTERNATIONAL NORMALISED RATIO INCREASED [None]
